FAERS Safety Report 17948863 (Version 1)
Quarter: 2020Q2

REPORT INFORMATION
  Report Type: Spontaneous
  Country: US (occurrence: US)
  Receive Date: 20200625
  Receipt Date: 20200625
  Transmission Date: 20200714
  Serious: No
  Sender: FDA-Public Use
  Company Number: US-ROCHE-2355449

PATIENT
  Sex: Female

DRUGS (2)
  1. KLONOPIN [Suspect]
     Active Substance: CLONAZEPAM
     Indication: PRODUCT USED FOR UNKNOWN INDICATION
     Route: 065
  2. ONFI [Concomitant]
     Active Substance: CLOBAZAM
     Route: 065

REACTIONS (7)
  - Fatigue [Unknown]
  - Pruritus [Unknown]
  - Musculoskeletal pain [Unknown]
  - Memory impairment [Unknown]
  - Peripheral swelling [Unknown]
  - Dyspnoea [Unknown]
  - Palpitations [Unknown]
